FAERS Safety Report 10175086 (Version 1)
Quarter: 2014Q2

REPORT INFORMATION
  Report Type: Spontaneous
  Country: US (occurrence: US)
  Receive Date: 20140515
  Receipt Date: 20140515
  Transmission Date: 20141212
  Serious: Yes (Hospitalization, Other)
  Sender: FDA-Public Use
  Company Number: US-ELI_LILLY_AND_COMPANY-US201405002351

PATIENT
  Sex: Male

DRUGS (3)
  1. HUMALOG 25% LISPRO, 75% NPL [Suspect]
     Indication: TYPE 2 DIABETES MELLITUS
     Dosage: 40 U, EACH MORNING
     Route: 065
     Dates: start: 201312
  2. HUMALOG 25% LISPRO, 75% NPL [Suspect]
     Dosage: 30 U, EACH EVENING
     Route: 065
     Dates: start: 201312
  3. GLIPIZIDE [Concomitant]

REACTIONS (5)
  - Blood glucose increased [Recovered/Resolved]
  - Neoplasm malignant [Unknown]
  - Visual acuity reduced [Unknown]
  - Blood glucose increased [Recovered/Resolved]
  - Blood glucose increased [Recovered/Resolved]
